FAERS Safety Report 21832074 (Version 1)
Quarter: 2023Q1

REPORT INFORMATION
  Report Type: Spontaneous
  Country: None (occurrence: US)
  Receive Date: 20230106
  Receipt Date: 20230106
  Transmission Date: 20230417
  Serious: Yes (Hospitalization, Other)
  Sender: FDA-Public Use
  Company Number: US-Pharmascience Inc.-2136506

PATIENT
  Age: 81 Year
  Sex: Female

DRUGS (1)
  1. DECITABINE [Suspect]
     Active Substance: DECITABINE
     Indication: Leukaemia

REACTIONS (4)
  - Condition aggravated [Unknown]
  - Acute kidney injury [Unknown]
  - Pulmonary oedema [Unknown]
  - Drug ineffective [Unknown]
